FAERS Safety Report 6054544-X (Version None)
Quarter: 2009Q1

REPORT INFORMATION
  Report Type: 
  Country: None (occurrence: None)
  Receive Date: 20090127
  Receipt Date: 20090121
  Transmission Date: 20090719
  Serious: Yes (Other)
  Sender: FDA-Public Use
  Company Number: PHHY2008FR22042

PATIENT
  Sex: Male
  Weight: 68 kg

DRUGS (5)
  1. TASIGNA [Suspect]
     Indication: CHRONIC MYELOID LEUKAEMIA
     Dosage: 800 MG DAILY
     Dates: start: 20080115, end: 20080901
  2. TASIGNA [Suspect]
     Dosage: 200 MG, BID
     Dates: start: 20080905, end: 20080917
  3. ANTACID TAB [Concomitant]
     Dosage: UNK
  4. ZOLOFT [Concomitant]
     Dosage: 1 DF DAILY
     Dates: start: 20060101
  5. STILNOX [Concomitant]
     Dosage: 1 DF DAILY
     Dates: start: 20060101

REACTIONS (8)
  - ANGINA PECTORIS [None]
  - ARTERIOSCLEROSIS CORONARY ARTERY [None]
  - ARTERIOSPASM CORONARY [None]
  - CHEST DISCOMFORT [None]
  - CHEST PAIN [None]
  - DIZZINESS [None]
  - STENT PLACEMENT [None]
  - TRISMUS [None]
